FAERS Safety Report 12114152 (Version 1)
Quarter: 2016Q1

REPORT INFORMATION
  Report Type: Spontaneous
  Country: US (occurrence: None)
  Receive Date: 20160224
  Receipt Date: 20160224
  Transmission Date: 20160526
  Serious: Yes (Hospitalization)
  Sender: FDA-Public Use
  Company Number: None

PATIENT
  Age: 75 Year
  Sex: Female
  Weight: 63.5 kg

DRUGS (1)
  1. MYRBETRIQ [Suspect]
     Active Substance: MIRABEGRON
     Indication: INCONTINENCE
     Dates: start: 20160114, end: 20160119

REACTIONS (4)
  - Blood pressure increased [None]
  - Diabetes mellitus inadequate control [None]
  - Syncope [None]
  - Blood sodium decreased [None]

NARRATIVE: CASE EVENT DATE: 20160120
